FAERS Safety Report 5625250-8 (Version None)
Quarter: 2008Q1

REPORT INFORMATION
  Report Type: 
  Country: None (occurrence: None)
  Receive Date: 20080213
  Receipt Date: 20080212
  Transmission Date: 20080703
  Serious: Yes (Other)
  Sender: FDA-Public Use
  Company Number: CA-MERCK-0802CAN00049

PATIENT
  Age: 88 Year
  Sex: Female

DRUGS (9)
  1. COZAAR [Suspect]
     Route: 048
  2. CLOPIDOGREL BISULFATE [Concomitant]
     Route: 065
  3. HYDRODIURIL [Concomitant]
     Route: 065
  4. METOPROLOL [Concomitant]
     Route: 065
  5. METFORMIN HYDROCHLORIDE [Concomitant]
     Route: 065
  6. INSULIN [Concomitant]
     Route: 065
  7. PREGABALIN [Concomitant]
     Route: 065
  8. AMLODIPINE BESYLATE [Concomitant]
     Route: 065
  9. PANTOPRAZOLE SODIUM [Concomitant]
     Route: 065

REACTIONS (4)
  - GAIT DISTURBANCE [None]
  - MOBILITY DECREASED [None]
  - MYALGIA [None]
  - PARAESTHESIA [None]
